FAERS Safety Report 7411043-8 (Version None)
Quarter: 2011Q2

REPORT INFORMATION
  Report Type: 
  Country: None (occurrence: None)
  Receive Date: 20110404
  Receipt Date: 20110325
  Transmission Date: 20111010
  Serious: Yes (Death)
  Sender: FDA-Public Use
  Company Number: JPNAB-11-0165

PATIENT
  Age: 57 Year
  Sex: Female
  Weight: 64 kg

DRUGS (2)
  1. ABRAXANE (PACLITAXEL) [Suspect]
     Indication: BREAST CANCER METASTATIC
     Dosage: (260 MG)
     Dates: start: 20110216, end: 20110216
  2. AROMASIN [Concomitant]

REACTIONS (3)
  - ASTHENIA [None]
  - LOSS OF CONSCIOUSNESS [None]
  - DYSARTHRIA [None]
